FAERS Safety Report 6377504-8 (Version None)
Quarter: 2009Q3

REPORT INFORMATION
  Report Type: 
  Country: None (occurrence: None)
  Receive Date: 20090924
  Receipt Date: 20090924
  Transmission Date: 20100115
  Serious: Yes (Life-Threatening, Hospitalization)
  Sender: FDA-Public Use
  Company Number: None

PATIENT
  Age: 75 Year
  Sex: Male

DRUGS (7)
  1. RT-PEPC COMBINATION RITUXIMAB [Suspect]
     Indication: MANTLE CELL LYMPHOMA
     Dosage: START: 11/29/07 - CONTINU
     Dates: start: 20071129
  2. RT-PEPC COMBINATION THALIDOMIDE [Suspect]
     Indication: MANTLE CELL LYMPHOMA
     Dosage: START: 11/29/07 - CONTINU
     Dates: start: 20071129
  3. RT-PEPC COMBINATION  PREDNISONE [Suspect]
     Indication: MANTLE CELL LYMPHOMA
     Dosage: START: 11/29/07 - CONTINU
     Dates: start: 20071129
  4. RT-PEPC COMBINATION  ETOPOSIDE [Suspect]
     Indication: MANTLE CELL LYMPHOMA
     Dosage: START: 11/29/07 - CONTINU
     Dates: start: 20071129
  5. RT-PEPC COMBINATION  PROCARBAZINE [Suspect]
     Indication: MANTLE CELL LYMPHOMA
     Dosage: START: 11/29/07 - CONTINU
     Dates: start: 20071129
  6. RT-PEPC COMBINATION CYCLOPHOSPHAMIDE [Suspect]
     Indication: MANTLE CELL LYMPHOMA
     Dosage: START: 11/29/07 - CONTINU
     Dates: start: 20071129
  7. .. [Suspect]

REACTIONS (1)
  - THROMBOCYTOPENIA [None]
